FAERS Safety Report 23705107 (Version 1)
Quarter: 2024Q2

REPORT INFORMATION
  Report Type: Spontaneous
  Country: US (occurrence: US)
  Receive Date: 20240404
  Receipt Date: 20240404
  Transmission Date: 20240716
  Serious: Yes (Hospitalization)
  Sender: FDA-Public Use
  Company Number: US-AUROBINDO-AUR-APL-2024-014468

PATIENT
  Age: 57 Year
  Sex: Female

DRUGS (7)
  1. DAPTOMYCIN [Suspect]
     Active Substance: DAPTOMYCIN
     Indication: Enterococcal infection
     Dosage: UNK
     Route: 042
  2. DOXYCYCLINE [Suspect]
     Active Substance: DOXYCYCLINE
     Indication: Enterococcal infection
     Dosage: UNK
     Route: 048
  3. TIGECYCLINE [Suspect]
     Active Substance: TIGECYCLINE
     Indication: Enterococcal infection
     Dosage: UNK
     Route: 065
  4. VANCOMYCIN [Suspect]
     Active Substance: VANCOMYCIN
     Indication: Enterococcal infection
     Dosage: UNK
     Route: 065
  5. CEFTAROLINE [Suspect]
     Active Substance: CEFTAROLINE
     Indication: Enterococcal infection
     Dosage: UNK
     Route: 065
  6. ORITAVANCIN [Suspect]
     Active Substance: ORITAVANCIN
     Indication: Enterococcal infection
     Dosage: UNK, EVERY WEEK
     Route: 065
  7. TEDIZOLID [Suspect]
     Active Substance: TEDIZOLID
     Indication: Enterococcal infection
     Dosage: UNK
     Route: 048

REACTIONS (2)
  - Infection [Not Recovered/Not Resolved]
  - Treatment failure [Unknown]
